FAERS Safety Report 10418795 (Version 1)
Quarter: 2014Q3

REPORT INFORMATION
  Report Type: Spontaneous
  Country: US (occurrence: US)
  Receive Date: 20140829
  Receipt Date: 20140829
  Transmission Date: 20150326
  Serious: No
  Sender: FDA-Public Use
  Company Number: US-MYLAN-2014S1007913

PATIENT
  Sex: Male

DRUGS (6)
  1. CLONIDINE. [Suspect]
     Active Substance: CLONIDINE
     Indication: IMPULSE-CONTROL DISORDER
     Dosage: .2 MG,QD
     Route: 062
  2. CLONIDINE. [Suspect]
     Active Substance: CLONIDINE
     Indication: OFF LABEL USE
  3. CLONIDINE TRANSDERMAL SYSTEM [Suspect]
     Active Substance: CLONIDINE
     Indication: OFF LABEL USE
  4. CLONIDINE. [Suspect]
     Active Substance: CLONIDINE
     Indication: IMPULSE-CONTROL DISORDER
     Dosage: .1 MG,QD
     Route: 062
  5. CLONIDINE. [Suspect]
     Active Substance: CLONIDINE
     Indication: OFF LABEL USE
  6. CLONIDINE TRANSDERMAL SYSTEM [Suspect]
     Active Substance: CLONIDINE
     Indication: IMPULSE-CONTROL DISORDER
     Dosage: .3 MG,QD
     Route: 062

REACTIONS (2)
  - Drug ineffective for unapproved indication [Not Recovered/Not Resolved]
  - Impulse-control disorder [Not Recovered/Not Resolved]
